FAERS Safety Report 18021555 (Version 1)
Quarter: 2020Q3

REPORT INFORMATION
  Report Type: Report from Study
  Country: JP (occurrence: JP)
  Receive Date: 20200714
  Receipt Date: 20200714
  Transmission Date: 20201103
  Serious: Yes (Hospitalization, Other)
  Sender: FDA-Public Use
  Company Number: JP-SAKK-BA201602731001

PATIENT

DRUGS (14)
  1. ALEMTUZUMAB [Suspect]
     Active Substance: ALEMTUZUMAB
     Indication: CHRONIC LYMPHOCYTIC LEUKAEMIA
     Dosage: 3 MG PER DOSE
     Route: 041
     Dates: start: 20160421, end: 20160421
  2. ACICLOVIR [Concomitant]
     Active Substance: ACYCLOVIR
     Indication: PROPHYLAXIS
     Dosage: 200 MG, QD
     Route: 048
  3. CALONAL [Concomitant]
     Active Substance: ACETAMINOPHEN
     Indication: PROPHYLAXIS
     Dosage: 600 MG, QD, ONCE BEFORE MABCAMPATH ADMINISTRATION (PREMEDICATION)
     Route: 048
     Dates: start: 20160421, end: 20160520
  4. RESTAMIN [DIPHENHYDRAMINE HYDROCHLORIDE] [Concomitant]
     Indication: PROPHYLAXIS
     Dosage: 50 MG, QD, ONCE BEFORE MABCAMPATH ADMINISTRATION (PREMEDICATION)
     Route: 048
     Dates: start: 20160421, end: 20160520
  5. ALEMTUZUMAB [Suspect]
     Active Substance: ALEMTUZUMAB
     Dosage: 10 MG, TIW
     Route: 041
     Dates: start: 20160518, end: 20160518
  6. ALEMTUZUMAB [Suspect]
     Active Substance: ALEMTUZUMAB
     Dosage: 30 MG, TIW
     Route: 041
     Dates: start: 20160520, end: 20160520
  7. CALONAL [Concomitant]
     Active Substance: ACETAMINOPHEN
     Indication: MALAISE
     Dosage: 400 MG, QD
     Route: 048
     Dates: start: 20160424, end: 20160426
  8. SAXIZON [Concomitant]
     Active Substance: HYDROCORTISONE SODIUM SUCCINATE
     Indication: PROPHYLAXIS
     Dosage: 200 MG, QD, ONCE BEFORE MABCAMPATH ADMINISTRATION (PREMEDICATION)
     Route: 042
     Dates: start: 20160421, end: 20160520
  9. CALONAL [Concomitant]
     Active Substance: ACETAMINOPHEN
     Indication: PYREXIA
  10. ALEMTUZUMAB [Suspect]
     Active Substance: ALEMTUZUMAB
     Dosage: 10 MG PER DOSE
     Route: 041
     Dates: start: 20160422, end: 20160422
  11. ALEMTUZUMAB [Suspect]
     Active Substance: ALEMTUZUMAB
     Dosage: 10 MG PER DOSE
     Route: 041
     Dates: start: 20160509, end: 20160509
  12. ALEMTUZUMAB [Suspect]
     Active Substance: ALEMTUZUMAB
     Dosage: 3 MG PER DOSE
     Route: 041
     Dates: start: 20160506, end: 20160506
  13. ALEMTUZUMAB [Suspect]
     Active Substance: ALEMTUZUMAB
     Dosage: 30 MG, TIW
     Route: 041
     Dates: start: 20160511, end: 20160511
  14. BACTRAMIN [Concomitant]
     Active Substance: SULFAMETHOXAZOLE\TRIMETHOPRIM
     Indication: PROPHYLAXIS
     Dosage: S 200MG, T 40MG, QD
     Route: 048

REACTIONS (3)
  - Thrombocytopenia [Recovering/Resolving]
  - Malaise [Recovering/Resolving]
  - Pyrexia [Recovering/Resolving]

NARRATIVE: CASE EVENT DATE: 20160424
